FAERS Safety Report 16479170 (Version 1)
Quarter: 2019Q2

REPORT INFORMATION
  Report Type: Spontaneous
  Country: US (occurrence: US)
  Receive Date: 20190626
  Receipt Date: 20190626
  Transmission Date: 20190711
  Serious: No
  Sender: FDA-Public Use
  Company Number: US-SAOL THERAPEUTICS-2019SAO00065

PATIENT
  Age: 56 Year
  Sex: Male

DRUGS (2)
  1. LIORESAL [Suspect]
     Active Substance: BACLOFEN
     Dosage: 459.48 ?G, \DAY
     Route: 037
     Dates: start: 20190212
  2. ORAL OPIOIDS (UNSPECIFIED) [Concomitant]
     Dosage: UNK

REACTIONS (2)
  - Muscle spasms [Recovered/Resolved]
  - Pain [Recovered/Resolved]

NARRATIVE: CASE EVENT DATE: 20190215
